FAERS Safety Report 8779858 (Version 2)
Quarter: 2012Q4

REPORT INFORMATION
  Report Type: Report from Study
  Country: JP (occurrence: JP)
  Receive Date: 20120912
  Receipt Date: 20121025
  Transmission Date: 20130627
  Serious: Yes (Hospitalization)
  Sender: FDA-Public Use
  Company Number: JP-ACTELION-A-CH2012-61856

PATIENT
  Age: 70 Year
  Sex: Male
  Weight: 54 kg

DRUGS (13)
  1. TRACLEER [Suspect]
     Indication: PULMONARY ARTERIAL HYPERTENSION
     Dosage: 15.63 mg, bid
     Route: 048
     Dates: start: 20110727, end: 20120206
  2. TRACLEER [Suspect]
     Dosage: 15.63 mg, bid
     Route: 048
     Dates: start: 20120210, end: 20120222
  3. TRACLEER [Suspect]
     Dosage: 31.25 mg, bid
     Route: 048
     Dates: start: 20120223, end: 20120530
  4. TRACLEER [Suspect]
     Dosage: 15.63 mg, bid
     Route: 048
     Dates: start: 20120531, end: 20120716
  5. WARFARIN POTASSIUM [Concomitant]
  6. ASPIRIN [Concomitant]
  7. TEPRENONE [Concomitant]
  8. ALLOPURINOL [Concomitant]
  9. ALFACALCIDOL [Concomitant]
  10. SENNOSIDE [Concomitant]
  11. CALCIUM CARBONATE [Concomitant]
  12. LANSOPRAZOLE [Concomitant]
  13. LANTHANUM CARBONATE [Concomitant]

REACTIONS (7)
  - Pruritus [Not Recovered/Not Resolved]
  - Chest pain [Recovered/Resolved]
  - Catheterisation cardiac [Recovered/Resolved]
  - Hepatic function abnormal [Recovering/Resolving]
  - Aspartate aminotransferase increased [Recovering/Resolving]
  - Alanine aminotransferase increased [Recovering/Resolving]
  - Blood alkaline phosphatase increased [Recovering/Resolving]
